FAERS Safety Report 4609334-9 (Version None)
Quarter: 2005Q1

REPORT INFORMATION
  Report Type: 
  Country: None (occurrence: None)
  Receive Date: 20050314
  Receipt Date: 20050303
  Transmission Date: 20050727
  Serious: Yes (Hospitalization)
  Sender: FDA-Public Use
  Company Number: 2005-00782

PATIENT
  Age: 18 Month
  Sex: Female

DRUGS (2)
  1. PREDNISOLONE [Suspect]
     Indication: IMMUNOSUPPRESSION
     Dosage: SEE IMAGE
  2. FK 506 (TACROLIMUS) [Suspect]
     Indication: IMMUNOSUPPRESSION
     Dosage: SEE IMAGE

REACTIONS (2)
  - EPSTEIN-BARR VIRUS INFECTION [None]
  - LYMPHOPROLIFERATIVE DISORDER [None]
